FAERS Safety Report 4468490-6 (Version None)
Quarter: 2004Q4

REPORT INFORMATION
  Report Type: 
  Country: None (occurrence: None)
  Receive Date: 20041006
  Receipt Date: 20040920
  Transmission Date: 20050328
  Serious: Yes (Hospitalization)
  Sender: FDA-Public Use
  Company Number: TRP_0015_2004

PATIENT
  Age: 63 Year
  Sex: Female
  Weight: 132.9039 kg

DRUGS (16)
  1. RIBASPHERE [Suspect]
     Indication: HEPATITIS C
     Dosage: DF
     Dates: start: 20040715
  2. PEG-INTRON [Suspect]
     Indication: HEPATITIS C
     Dosage: DF
     Dates: start: 20040715
  3. ASPIRIN COMPOUND [Concomitant]
  4. COLCHICINE [Concomitant]
  5. ENDOCET [Concomitant]
  6. GLIPIZIDE [Concomitant]
  7. HYDRALAZINE HCL [Concomitant]
  8. LIPITOR [Concomitant]
  9. LISINOPRIL [Concomitant]
  10. METFORMIN HCL [Concomitant]
  11. NITROGLYCERIN COMP. [Concomitant]
  12. NORVASC [Concomitant]
  13. PLAVIX [Concomitant]
  14. PREVACID [Concomitant]
  15. TYLENOL [Concomitant]
  16. HYDROCHLOROTHIAZIDE [Concomitant]

REACTIONS (2)
  - CHEST PAIN [None]
  - STENT OCCLUSION [None]
